FAERS Safety Report 6786399-X (Version None)
Quarter: 2010Q2

REPORT INFORMATION
  Report Type: 
  Country: None (occurrence: None)
  Receive Date: 20100623
  Receipt Date: 20100617
  Transmission Date: 20101027
  Serious: Yes (Hospitalization)
  Sender: FDA-Public Use
  Company Number: A0709950A

PATIENT
  Age: 34 Year
  Sex: Male
  Weight: 117.3 kg

DRUGS (3)
  1. AVANDIA [Suspect]
     Dosage: 4MG PER DAY
     Route: 048
     Dates: start: 20001001, end: 20070501
  2. CRESTOR [Concomitant]
     Dates: start: 20001001
  3. ALTACE [Concomitant]
     Dates: start: 20001001

REACTIONS (5)
  - ACUTE CORONARY SYNDROME [None]
  - ARTERIOSCLEROSIS [None]
  - CORONARY ARTERY DISEASE [None]
  - ISCHAEMIA [None]
  - MYOCARDIAL INFARCTION [None]
